FAERS Safety Report 7999462-2 (Version None)
Quarter: 2011Q4

REPORT INFORMATION
  Report Type: 
  Country: None (occurrence: None)
  Receive Date: 20111221
  Receipt Date: 20111219
  Transmission Date: 20120403
  Serious: No
  Sender: FDA-Public Use
  Company Number: US-PFIZER INC-2011308076

PATIENT
  Sex: Male

DRUGS (8)
  1. IBUPROFEN (ADVIL) [Suspect]
     Indication: SWELLING
  2. ATIVAN [Concomitant]
     Indication: DEPRESSION
  3. LEXAPRO [Concomitant]
     Indication: DEPRESSION
  4. IBUPROFEN (ADVIL) [Suspect]
     Indication: LIGAMENT SPRAIN
     Dosage: 400 MG, 3X/DAY
     Route: 048
     Dates: start: 20111201
  5. IBUPROFEN (ADVIL) [Suspect]
     Indication: PAIN
  6. ATIVAN [Concomitant]
     Indication: ANXIETY
     Dosage: 1 MG, 4X/DAY
  7. ZOCOR [Concomitant]
     Indication: BLOOD CHOLESTEROL INCREASED
     Dosage: 40 MG, 1X/DAY
  8. LEXAPRO [Concomitant]
     Indication: ANXIETY
     Dosage: 20 MG, 1X/DAY

REACTIONS (1)
  - DRUG INEFFECTIVE [None]
